FAERS Safety Report 10927205 (Version 2)
Quarter: 2015Q1

REPORT INFORMATION
  Report Type: Spontaneous
  Country: US (occurrence: None)
  Receive Date: 20150316
  Receipt Date: 20150317
  Transmission Date: 20150721
  Serious: Yes (Other)
  Sender: FDA-Public Use
  Company Number: ADR-2015-00499

PATIENT
  Age: 50 Year
  Sex: Male

DRUGS (4)
  1. BACLOFEN INTRATHECAL [Suspect]
     Active Substance: BACLOFEN
     Indication: BACK PAIN
  2. BUPIVACAINE [Suspect]
     Active Substance: BUPIVACAINE
  3. DILAUDID [Suspect]
     Active Substance: HYDROMORPHONE HYDROCHLORIDE
  4. CLONIDINE. [Suspect]
     Active Substance: CLONIDINE

REACTIONS (5)
  - Neurological symptom [None]
  - Spinal cord compression [None]
  - Back pain [None]
  - No therapeutic response [None]
  - Device dislocation [None]
